FAERS Safety Report 15288610 (Version 1)
Quarter: 2018Q3

REPORT INFORMATION
  Report Type: Report from Study
  Country: NL (occurrence: NL)
  Receive Date: 20180817
  Receipt Date: 20180817
  Transmission Date: 20181010
  Serious: Yes (Hospitalization, Other)
  Sender: FDA-Public Use
  Company Number: NL-GLAXOSMITHKLINE-NL2018142320

PATIENT
  Age: 37 Year
  Sex: Male

DRUGS (2)
  1. FREMANEZUMAB [Suspect]
     Active Substance: FREMANEZUMAB
     Indication: CLUSTER HEADACHE
     Dosage: UNK
     Route: 065
     Dates: start: 20180423
  2. DICLOFENAC [Suspect]
     Active Substance: DICLOFENAC
     Indication: CLUSTER HEADACHE
     Dosage: 1800 MG, QD
     Route: 048

REACTIONS (1)
  - Gastric haemorrhage [Recovered/Resolved]

NARRATIVE: CASE EVENT DATE: 20180615
